FAERS Safety Report 6938139-9 (Version None)
Quarter: 2010Q3

REPORT INFORMATION
  Report Type: 
  Country: None (occurrence: None)
  Receive Date: 20100824
  Receipt Date: 20100810
  Transmission Date: 20110219
  Serious: Yes (Other)
  Sender: FDA-Public Use
  Company Number: PHHY2010AR51221

PATIENT
  Sex: Female

DRUGS (1)
  1. ZOLEDRONIC [Suspect]
     Indication: OSTEOARTHRITIS
     Dosage: 1 AMPOULE
     Route: 042
     Dates: start: 20100801

REACTIONS (1)
  - DENTAL IMPLANTATION [None]
